FAERS Safety Report 5113397-4 (Version None)
Quarter: 2006Q3

REPORT INFORMATION
  Report Type: 
  Country: None (occurrence: None)
  Receive Date: 20060920
  Receipt Date: 20060911
  Transmission Date: 20061208
  Serious: Yes (Death)
  Sender: FDA-Public Use
  Company Number: 2006US002002

PATIENT

DRUGS (2)
  1. AMBISOME [Suspect]
     Indication: FUNGAL INFECTION
     Dosage: SEE IMAGE
     Route: 042
  2. CASPOFUNGIN (CASPOFUNGIN) [Concomitant]

REACTIONS (1)
  - DEATH [None]
